APPROVED DRUG PRODUCT: TECHNETIUM TC-99M MEBROFENIN
Active Ingredient: TECHNETIUM TC-99M MEBROFENIN KIT
Strength: N/A
Dosage Form/Route: INJECTABLE;INJECTION
Application: A078242 | Product #001 | TE Code: AP
Applicant: SUN PHARMACEUTICAL INDUSTRIES INC
Approved: Jan 29, 2008 | RLD: No | RS: No | Type: RX